FAERS Safety Report 13412526 (Version 2)
Quarter: 2017Q4

REPORT INFORMATION
  Report Type: Spontaneous
  Country: US (occurrence: US)
  Receive Date: 20170406
  Receipt Date: 20171123
  Transmission Date: 20180320
  Serious: No
  Sender: FDA-Public Use
  Company Number: US-JNJFOC-20170307845

PATIENT
  Sex: Male

DRUGS (4)
  1. RISPERDAL CONSTA [Suspect]
     Active Substance: RISPERIDONE
     Indication: SCHIZOPHRENIA
     Dosage: VARYING DOSES OF 25 AND 50 MG, VARYING FREQUENCIES
     Route: 030
     Dates: start: 20071205, end: 20111119
  2. RISPERDAL [Suspect]
     Active Substance: RISPERIDONE
     Indication: SCHIZOPHRENIA
     Dosage: VARYING DOSES OF 0.5, 01, 02, 03 MG
     Route: 048
     Dates: end: 20130718
  3. RISPERDAL [Suspect]
     Active Substance: RISPERIDONE
     Indication: SCHIZOPHRENIA
     Dosage: VARYING DOSES OF 0.5, 01, 02, 03 MG
     Route: 048
     Dates: start: 20060102, end: 20080111
  4. RISPERIDONE. [Suspect]
     Active Substance: RISPERIDONE
     Indication: SCHIZOPHRENIA
     Dosage: VARYING DOSES OF 03, 04 MG
     Route: 048
     Dates: start: 20060102, end: 20130718

REACTIONS (2)
  - Emotional disorder [Unknown]
  - Gynaecomastia [Unknown]
